FAERS Safety Report 6136656-5 (Version None)
Quarter: 2009Q1

REPORT INFORMATION
  Report Type: 
  Country: None (occurrence: None)
  Receive Date: 20090330
  Receipt Date: 20090324
  Transmission Date: 20090719
  Serious: Yes (Disabling)
  Sender: FDA-Public Use
  Company Number: B0566468A

PATIENT
  Sex: Male

DRUGS (4)
  1. KIVEXA [Suspect]
     Indication: HIV INFECTION
     Dosage: 1TAB PER DAY
     Route: 048
     Dates: start: 20040713
  2. VIREAD [Suspect]
     Indication: HIV INFECTION
     Dosage: 245MG ALTERNATE DAYS
     Route: 048
     Dates: start: 20020603
  3. REYATAZ [Suspect]
     Indication: HIV INFECTION
     Dosage: 200MG TWICE PER DAY
     Route: 048
     Dates: start: 20040505
  4. CORTICOIDS [Concomitant]
     Route: 065

REACTIONS (3)
  - ARTHRALGIA [None]
  - OSTEONECROSIS [None]
  - PAIN [None]
